FAERS Safety Report 5320604-1 (Version None)
Quarter: 2007Q2

REPORT INFORMATION
  Report Type: 
  Country: None (occurrence: None)
  Receive Date: 20070209
  Receipt Date: 20061121
  Transmission Date: 20071010
  Serious: No
  Sender: FDA-Public Use
  Company Number: 200619563US

PATIENT
  Age: 59 Year
  Sex: Female

DRUGS (6)
  1. APIDRA [Suspect]
     Indication: DIABETES MELLITUS NON-INSULIN-DEPENDENT
     Dosage: INJ
     Route: 042
     Dates: start: 20061105
  2. LANTUS [Suspect]
     Indication: DIABETES MELLITUS NON-INSULIN-DEPENDENT
     Dosage: 20 U INJ
     Route: 042
     Dates: start: 20061105
  3. OPTICLIK [Suspect]
     Indication: DIABETES MELLITUS NON-INSULIN-DEPENDENT
     Dates: start: 20061105
  4. BYETTA [Concomitant]
  5. LABETALOL HCL [Concomitant]
  6. SYNTHROID [Concomitant]

REACTIONS (1)
  - VAGINAL DISCHARGE [None]
